FAERS Safety Report 15131419 (Version 14)
Quarter: 2019Q3

REPORT INFORMATION
  Report Type: Spontaneous
  Country: US (occurrence: US)
  Receive Date: 20180711
  Receipt Date: 20190916
  Transmission Date: 20191004
  Serious: Yes (Hospitalization)
  Sender: FDA-Public Use
  Company Number: US-ACTELION-A-NJ2018-174326

PATIENT
  Age: 56 Year
  Sex: Female
  Weight: 58.96 kg

DRUGS (3)
  1. VELETRI [Suspect]
     Active Substance: EPOPROSTENOL
     Indication: PULMONARY ARTERIAL HYPERTENSION
     Dosage: 20 NG/KG, PER MIN
     Route: 042
  2. WARFARIN [Concomitant]
     Active Substance: WARFARIN
  3. VELETRI [Suspect]
     Active Substance: EPOPROSTENOL
     Dosage: 20 NG/KG, PER MIN
     Route: 042

REACTIONS (21)
  - Hypersensitivity [Unknown]
  - Urticaria [Unknown]
  - Urinary tract infection [Unknown]
  - Influenza [Unknown]
  - Bronchitis [Unknown]
  - Catheter site discharge [Unknown]
  - Cardiac valve disease [Unknown]
  - Pruritus [Unknown]
  - Dizziness [Unknown]
  - Herpes zoster [Unknown]
  - Chest pain [Recovered/Resolved]
  - Neck pain [Recovered/Resolved]
  - Catheter site pain [Unknown]
  - Device breakage [Unknown]
  - Food allergy [Unknown]
  - Fatigue [Recovered/Resolved]
  - Headache [Unknown]
  - Catheter site swelling [Unknown]
  - Rhinorrhoea [Unknown]
  - Pain in jaw [Recovered/Resolved]
  - Catheter site haemorrhage [Unknown]

NARRATIVE: CASE EVENT DATE: 201806
